FAERS Safety Report 4329794-0 (Version None)
Quarter: 2004Q1

REPORT INFORMATION
  Report Type: 
  Country: None (occurrence: None)
  Receive Date: 20040329
  Receipt Date: 20040315
  Transmission Date: 20041129
  Serious: Yes (Death, Hospitalization)
  Sender: FDA-Public Use
  Company Number: UK070173

PATIENT
  Sex: Male

DRUGS (1)
  1. ARANESP [Suspect]
     Indication: DIALYSIS
     Dosage: 30 MCG, 1 IN 1 WEEKS, IV
     Route: 042
     Dates: start: 20010925, end: 20040105

REACTIONS (2)
  - ABDOMINAL SYMPTOM [None]
  - LARGE INTESTINE PERFORATION [None]
